FAERS Safety Report 8138985-2 (Version None)
Quarter: 2012Q1

REPORT INFORMATION
  Report Type: 
  Country: None (occurrence: None)
  Receive Date: 20120215
  Receipt Date: 20120207
  Transmission Date: 20120608
  Serious: No
  Sender: FDA-Public Use
  Company Number: US-PFIZER INC-2012030335

PATIENT
  Sex: Male
  Weight: 70.295 kg

DRUGS (11)
  1. CELEBREX [Suspect]
     Indication: PAIN
  2. CELEBREX [Suspect]
     Indication: MUSCULOSKELETAL PAIN
     Dosage: 200 MG, 2X/DAY
     Route: 048
     Dates: start: 20120125
  3. LISINOPRIL [Concomitant]
     Indication: HYPERTENSION
     Dosage: 20 MG, 1X/DAY
  4. CELEBREX [Suspect]
     Indication: CHEST PAIN
  5. CELEBREX [Suspect]
     Indication: DISCOMFORT
  6. BETIMOL [Suspect]
     Indication: GLAUCOMA
     Dosage: 0.25%
     Route: 047
  7. TRIAZOLAM [Suspect]
     Indication: SLEEP DISORDER
     Dosage: UNK
  8. LUMIGAN [Suspect]
     Indication: GLAUCOMA
     Dosage: UNK
     Route: 047
  9. CELEBREX [Suspect]
     Indication: PAIN IN EXTREMITY
  10. CELEBREX [Suspect]
     Indication: INFLAMMATION
  11. LOVASTATIN [Concomitant]
     Indication: BLOOD CHOLESTEROL INCREASED
     Dosage: 20 MG, 1X/DAY

REACTIONS (5)
  - INFLAMMATION [None]
  - PAIN [None]
  - DRUG INEFFECTIVE [None]
  - HEADACHE [None]
  - DISCOMFORT [None]
